FAERS Safety Report 22774667 (Version 2)
Quarter: 2023Q4

REPORT INFORMATION
  Report Type: Spontaneous
  Country: US (occurrence: None)
  Receive Date: 20230802
  Receipt Date: 20231107
  Transmission Date: 20240109
  Serious: Yes (Other)
  Sender: FDA-Public Use
  Company Number: US-ROCHE-3396457

PATIENT
  Sex: Female

DRUGS (2)
  1. OCREVUS [Suspect]
     Active Substance: OCRELIZUMAB
     Indication: Multiple sclerosis
     Dosage: STRENGTH: 300MG/10ML?SDV
     Route: 042
     Dates: start: 202304
  2. OCREVUS [Suspect]
     Active Substance: OCRELIZUMAB
     Dosage: STRENGTH: 300MG/10ML
     Route: 042
     Dates: start: 202205

REACTIONS (1)
  - Multiple sclerosis relapse [Unknown]
